FAERS Safety Report 25903658 (Version 1)
Quarter: 2025Q4

REPORT INFORMATION
  Report Type: Spontaneous
  Country: EU (occurrence: EU)
  Receive Date: 20251010
  Receipt Date: 20251010
  Transmission Date: 20260117
  Serious: Yes (Life-Threatening, Other)
  Sender: TEVA
  Company Number: None

PATIENT
  Age: 32 Year
  Sex: Male
  Weight: 70 kg

DRUGS (5)
  1. BROMAZEPAM [Suspect]
     Active Substance: BROMAZEPAM
     Indication: Product used for unknown indication
     Route: 065
  2. PREGABALIN [Suspect]
     Active Substance: PREGABALIN
     Indication: Product used for unknown indication
     Route: 065
  3. COCAINE [Suspect]
     Active Substance: COCAINE
     Indication: Product used for unknown indication
     Route: 065
  4. CLONAZEPAM [Suspect]
     Active Substance: CLONAZEPAM
     Indication: Product used for unknown indication
     Route: 065
  5. CANNABIS SATIVA SUBSP. INDICA TOP [Suspect]
     Active Substance: CANNABIS SATIVA SUBSP. INDICA TOP
     Indication: Product used for unknown indication
     Route: 065

REACTIONS (7)
  - Seizure [Recovered/Resolved]
  - Bradycardia [Recovered/Resolved]
  - Hypothermia [Recovered/Resolved]
  - Mydriasis [Recovered/Resolved]
  - Substance use disorder [Unknown]
  - Coma [Recovered/Resolved]
  - Drug use disorder [Unknown]

NARRATIVE: CASE EVENT DATE: 20250614
